FAERS Safety Report 7772341-1 (Version None)
Quarter: 2011Q3

REPORT INFORMATION
  Report Type: 
  Country: None (occurrence: None)
  Receive Date: 20110922
  Receipt Date: 20110318
  Transmission Date: 20111222
  Serious: Yes (Hospitalization, Other)
  Sender: FDA-Public Use
  Company Number: US-ASTRAZENECA-2009UW11604

PATIENT
  Age: 10 Year
  Sex: Female

DRUGS (8)
  1. SEROQUEL [Suspect]
     Indication: SLEEP DISORDER
     Route: 048
     Dates: start: 20070701, end: 20080731
  2. SEROQUEL [Suspect]
     Route: 048
     Dates: start: 20080122
  3. CONCERTA [Concomitant]
     Indication: ATTENTION DEFICIT/HYPERACTIVITY DISORDER
  4. TRIAMCINOLONE [Concomitant]
     Dates: start: 20080102
  5. XOPENEX [Concomitant]
     Dosage: 0.63 MG/3ML
     Dates: start: 20080103
  6. XYZAL [Concomitant]
     Dates: start: 20080102
  7. ADDERALL XR 10 [Concomitant]
     Dates: start: 20080109
  8. INTUNIV [Concomitant]
     Indication: ATTENTION DEFICIT/HYPERACTIVITY DISORDER

REACTIONS (3)
  - CONVULSION [None]
  - TYPE 2 DIABETES MELLITUS [None]
  - PANCREATITIS [None]
